FAERS Safety Report 12078287 (Version 3)
Quarter: 2016Q1

REPORT INFORMATION
  Report Type: Report from Study
  Country: AU (occurrence: AU)
  Receive Date: 20160215
  Receipt Date: 20160314
  Transmission Date: 20160526
  Serious: Yes (Hospitalization)
  Sender: FDA-Public Use
  Company Number: AU-ROCHE-1706941

PATIENT
  Age: 67 Year
  Sex: Male
  Weight: 110 kg

DRUGS (27)
  1. NEURONTIN [Suspect]
     Active Substance: GABAPENTIN
     Indication: COMPLEX REGIONAL PAIN SYNDROME
     Route: 065
     Dates: start: 199601
  2. DIAFORMIN [Concomitant]
     Active Substance: METFORMIN HYDROCHLORIDE
     Indication: DIABETES MELLITUS
     Route: 065
     Dates: start: 201001
  3. ALODORM [Concomitant]
     Indication: COMPLEX REGIONAL PAIN SYNDROME
     Route: 065
     Dates: start: 201001
  4. DIPROSONE [Concomitant]
     Active Substance: BETAMETHASONE DIPROPIONATE
     Route: 065
     Dates: start: 20140625
  5. CHLORHEXIDINE [Concomitant]
     Active Substance: CHLORHEXIDINE
     Indication: FOLLICULITIS
     Route: 065
     Dates: start: 20140625
  6. MS CONTIN [Suspect]
     Active Substance: MORPHINE SULFATE
     Route: 065
     Dates: start: 200212
  7. EFFEXOR [Concomitant]
     Active Substance: VENLAFAXINE HYDROCHLORIDE
     Indication: DEPRESSION
     Route: 065
     Dates: start: 200601
  8. DIPROSONE [Concomitant]
     Active Substance: BETAMETHASONE DIPROPIONATE
     Indication: NEURODERMATITIS
     Route: 065
     Dates: start: 20140402, end: 20140430
  9. VOLTAREN [Concomitant]
     Active Substance: DICLOFENAC SODIUM
     Indication: EPICONDYLITIS
     Route: 065
     Dates: start: 20150305, end: 20150408
  10. AMLODIPINE [Concomitant]
     Active Substance: AMLODIPINE BESYLATE
     Indication: HYPERTENSION
     Route: 065
     Dates: start: 201401
  11. LOMOTIL (AUSTRALIA) [Concomitant]
     Indication: DIARRHOEA
     Route: 065
     Dates: start: 20150425, end: 20150427
  12. VENESECTION [Concomitant]
     Indication: POLYCYTHAEMIA
     Route: 065
     Dates: start: 20131203, end: 20131203
  13. MS CONTIN [Suspect]
     Active Substance: MORPHINE SULFATE
     Indication: COMPLEX REGIONAL PAIN SYNDROME
     Route: 065
     Dates: start: 200201
  14. OSTELIN VITAMIN D + CALCIUM TABLETS [Concomitant]
     Indication: OSTEOPOROSIS
     Route: 065
     Dates: start: 201001, end: 20130529
  15. TOPAMAX [Concomitant]
     Active Substance: TOPIRAMATE
     Indication: TRIGEMINAL NEURALGIA
     Route: 065
     Dates: start: 199601
  16. ENDONE [Concomitant]
     Active Substance: OXYCODONE HYDROCHLORIDE
     Indication: COMPLEX REGIONAL PAIN SYNDROME
     Dosage: PRN
     Route: 065
     Dates: start: 200201
  17. DOXYCYCLINE. [Concomitant]
     Active Substance: DOXYCYCLINE
     Indication: NEURODERMATITIS
     Route: 065
     Dates: start: 20150918
  18. VISMODEGIB [Suspect]
     Active Substance: VISMODEGIB
     Indication: BASAL CELL CARCINOMA
     Dosage: DATE OF LAST DOSE PRIOR TO SAE: 25/JAN/2016
     Route: 048
     Dates: start: 20130207
  19. OSTELIN VITAMIN D + CALCIUM TABLETS [Concomitant]
     Route: 065
     Dates: start: 20130529
  20. BUPIVACAINE [Concomitant]
     Active Substance: BUPIVACAINE
     Indication: COMPLEX REGIONAL PAIN SYNDROME
     Route: 065
     Dates: start: 20130331, end: 20130331
  21. VITAMIN B6 [Concomitant]
     Active Substance: PYRIDOXINE HYDROCHLORIDE
     Indication: MUSCLE SPASMS
     Route: 065
     Dates: start: 201402
  22. CLINDAMYCIN [Concomitant]
     Active Substance: CLINDAMYCIN\CLINDAMYCIN PHOSPHATE
     Indication: FOLLICULITIS
     Dosage: 1% TOPICAL SOLUTION
     Route: 065
     Dates: start: 20140820
  23. LOMOTIL (AUSTRALIA) [Concomitant]
     Route: 065
     Dates: start: 20151004, end: 20151006
  24. FERROUS SULFATE [Concomitant]
     Active Substance: FERROUS SULFATE\FERROUS SULFATE, DRIED
     Indication: IRON DEFICIENCY
     Route: 065
     Dates: start: 20151016
  25. PANTOPRAZOLE [Concomitant]
     Active Substance: PANTOPRAZOLE SODIUM
     Indication: PROPHYLAXIS
     Route: 065
     Dates: start: 20151127, end: 20151223
  26. BACLOFEN. [Concomitant]
     Active Substance: BACLOFEN
     Indication: COMPLEX REGIONAL PAIN SYNDROME
     Route: 065
     Dates: start: 198501
  27. CLINDAMYCIN [Concomitant]
     Active Substance: CLINDAMYCIN\CLINDAMYCIN PHOSPHATE
     Indication: NEURODERMATITIS
     Dosage: 1% TOPICAL SOLUTION
     Route: 065
     Dates: start: 20150918

REACTIONS (1)
  - Lethargy [Recovered/Resolved]

NARRATIVE: CASE EVENT DATE: 20160125
